APPROVED DRUG PRODUCT: LORAZEPAM
Active Ingredient: LORAZEPAM
Strength: 2MG/ML
Dosage Form/Route: CONCENTRATE;ORAL
Application: A079244 | Product #001
Applicant: CHARTWELL MOLECULAR HOLDINGS LLC
Approved: Apr 28, 2009 | RLD: No | RS: No | Type: DISCN